FAERS Safety Report 9836714 (Version 2)
Quarter: 2014Q1

REPORT INFORMATION
  Report Type: Report from Study
  Country: BE (occurrence: BE)
  Receive Date: 20140123
  Receipt Date: 20140307
  Transmission Date: 20141002
  Serious: Yes (Death, Hospitalization)
  Sender: FDA-Public Use
  Company Number: PHHY2014BE006828

PATIENT
  Age: 62 Year
  Sex: Male

DRUGS (5)
  1. NEORAL [Suspect]
     Indication: PROPHYLAXIS AGAINST TRANSPLANT REJECTION
     Dosage: 125 MG, (75+50) ON DAY 1
     Route: 048
     Dates: start: 20081109, end: 20081109
  2. NEORAL [Suspect]
     Dosage: 100 MG, (50+50) ON DAY 2
     Route: 048
     Dates: start: 20081110, end: 20081110
  3. NEORAL [Suspect]
     Dosage: 112.5 MG, UNK
     Route: 048
     Dates: start: 20091103, end: 20100122
  4. IMURAN [Suspect]
     Indication: IMMUNOSUPPRESSION
     Dates: start: 20100122
  5. MEDROL [Suspect]
     Dosage: 4 MG, UNK

REACTIONS (5)
  - Sepsis [Fatal]
  - Pneumothorax [Unknown]
  - Acute respiratory distress syndrome [Unknown]
  - Staphylococcal infection [Unknown]
  - Pseudomonas infection [Unknown]
